FAERS Safety Report 23061353 (Version 2)
Quarter: 2023Q4

REPORT INFORMATION
  Report Type: Spontaneous
  Country: US (occurrence: US)
  Receive Date: 20231013
  Receipt Date: 20231130
  Transmission Date: 20240110
  Serious: No
  Sender: FDA-Public Use
  Company Number: US-002147023-NVSC2023US220562

PATIENT
  Age: 85 Year
  Sex: Female

DRUGS (2)
  1. LEQVIO [Suspect]
     Active Substance: INCLISIRAN SODIUM
     Indication: Hyperlipidaemia
     Dosage: 300 MG (EVERY 6 MONTHS, FOLLOWING AN INITIAL DOSE AND A DOSE AT 3 MONTHS)
     Route: 058
     Dates: start: 20230824
  2. LEQVIO [Suspect]
     Active Substance: INCLISIRAN SODIUM
     Dosage: 184 MG/MLUNK
     Route: 058
     Dates: start: 20230824, end: 20230824

REACTIONS (2)
  - Myalgia [Recovered/Resolved]
  - Injection site pain [Not Recovered/Not Resolved]

NARRATIVE: CASE EVENT DATE: 20230824
